FAERS Safety Report 7826041-X (Version None)
Quarter: 2011Q4

REPORT INFORMATION
  Report Type: 
  Country: None (occurrence: None)
  Receive Date: 20111019
  Receipt Date: 20111010
  Transmission Date: 20120403
  Serious: Yes (Other)
  Sender: FDA-Public Use
  Company Number: US-ASTRAZENECA-2011SE60728

PATIENT
  Age: 71 Year
  Sex: Female

DRUGS (13)
  1. WARFARIN SODIUM [Interacting]
     Route: 065
  2. METOPROLOL SUCCINATE [Suspect]
     Route: 048
  3. BUMETANIDE [Interacting]
     Route: 065
  4. METOLAZONE [Interacting]
     Route: 065
  5. CETIRIZINE HCL [Interacting]
     Route: 065
  6. SIMVASTATIN [Interacting]
     Route: 065
  7. POTASSIUM CHLORIDE [Interacting]
     Route: 065
  8. DILTIAZEM HCL [Interacting]
     Route: 065
  9. LATANOPROST [Interacting]
     Route: 065
  10. SPIRONOLACTONE [Interacting]
     Route: 065
  11. FOLIC ACID [Interacting]
     Route: 065
  12. LORAZEPAM [Interacting]
     Route: 065
  13. TIKOSYN [Interacting]
     Indication: ATRIAL FIBRILLATION
     Route: 065

REACTIONS (12)
  - DYSPNOEA [None]
  - EYE OEDEMA [None]
  - DRUG INTERACTION [None]
  - BLOOD ELECTROLYTES ABNORMAL [None]
  - MALAISE [None]
  - NASAL DISORDER [None]
  - DIARRHOEA [None]
  - OEDEMA [None]
  - VENTRICULAR EXTRASYSTOLES [None]
  - BLOOD CREATINE INCREASED [None]
  - MENTAL IMPAIRMENT [None]
  - VISUAL IMPAIRMENT [None]
